FAERS Safety Report 4811496-5 (Version None)
Quarter: 2005Q4

REPORT INFORMATION
  Report Type: 
  Country: None (occurrence: None)
  Receive Date: 20051027
  Receipt Date: 20051020
  Transmission Date: 20060501
  Serious: Yes (Other)
  Sender: FDA-Public Use
  Company Number: PHBS2005BR15588

PATIENT
  Age: 24 Year
  Sex: Female
  Weight: 84 kg

DRUGS (2)
  1. METHERGINE [Suspect]
     Dosage: 0.625 MG, ONCE/SINGLE
     Route: 048
     Dates: start: 20051020, end: 20051020
  2. ALDOMET [Concomitant]
     Indication: HYPERTENSION
     Route: 048
     Dates: start: 20050921

REACTIONS (6)
  - DRUG EXPOSURE DURING PREGNANCY [None]
  - DYSPNOEA [None]
  - HEADACHE [None]
  - HYPERAEMIA [None]
  - OEDEMA [None]
  - OVERDOSE [None]
